FAERS Safety Report 4282096-3 (Version None)
Quarter: 2004Q1

REPORT INFORMATION
  Report Type: 
  Country: None (occurrence: None)
  Receive Date: 20040130
  Receipt Date: 20030506
  Transmission Date: 20041129
  Serious: No
  Sender: FDA-Public Use
  Company Number: US-BRISTOL-MYERS SQUIBB COMPANY-12269148

PATIENT
  Age: 54 Year
  Sex: Female
  Weight: 54 kg

DRUGS (7)
  1. DESYREL [Suspect]
     Indication: DEPRESSION
     Dosage: ^13 TO 14 YRS AGO^150MG ONCE/DAY AT BEDTIME;^AT TIMES^150MG ALTERNATING EVERY OTHER NIGHT WITH 100MG
     Route: 048
  2. LITHIUM CARBONATE [Concomitant]
  3. MULTI-VITAMIN [Concomitant]
  4. VITAMIN E [Concomitant]
  5. VITAMIN C [Concomitant]
  6. CALCIUM [Concomitant]
  7. GLUCOSAMINE [Concomitant]

REACTIONS (3)
  - DIARRHOEA [None]
  - EYE SWELLING [None]
  - SKIN DISCOLOURATION [None]
